FAERS Safety Report 24247367 (Version 1)
Quarter: 2024Q3

REPORT INFORMATION
  Report Type: Spontaneous
  Country: PL (occurrence: PL)
  Receive Date: 20240826
  Receipt Date: 20240826
  Transmission Date: 20241016
  Serious: Yes (Other)
  Sender: SANDOZ
  Company Number: PL-FreseniusKabi-FK202412510

PATIENT
  Age: 15 Year
  Sex: Male

DRUGS (2)
  1. ADALIMUMAB [Suspect]
     Active Substance: ADALIMUMAB
     Indication: Crohn^s disease
     Dosage: UNK
     Route: 065
  2. VEDOLIZUMAB [Concomitant]
     Active Substance: VEDOLIZUMAB
     Indication: Crohn^s disease
     Dosage: WITHDRAWAL OF VEDOLIZUMAB WAS CONSIDERED, AS IT IS ALSO ASSOCIATED WITH KIDNEY DYSFUNCTION
     Route: 065

REACTIONS (1)
  - Renal injury [Recovered/Resolved]
